FAERS Safety Report 8514709-1 (Version None)
Quarter: 2012Q3

REPORT INFORMATION
  Report Type: 
  Country: None (occurrence: None)
  Receive Date: 20120717
  Receipt Date: 20120704
  Transmission Date: 20120928
  Serious: Yes (Other)
  Sender: FDA-Public Use
  Company Number: JP-ACTELION-A-CH2012-68507

PATIENT
  Age: 8 Year
  Sex: Female

DRUGS (5)
  1. TRACLEER [Suspect]
     Indication: PULMONARY ARTERIAL HYPERTENSION
     Dosage: UNK
     Route: 048
     Dates: start: 20100401
  2. SILDENAFIL [Concomitant]
  3. BERAPROST [Concomitant]
  4. WARFARIN SODIUM [Concomitant]
  5. OXYGEN [Concomitant]

REACTIONS (9)
  - TRANSPLANT REJECTION [None]
  - CARDIAC FAILURE [None]
  - CARDIAC FAILURE CONGESTIVE [None]
  - BRAIN NATRIURETIC PEPTIDE INCREASED [None]
  - DIABETES MELLITUS [None]
  - LUNG TRANSPLANT [None]
  - EPISTAXIS [None]
  - MECHANICAL VENTILATION [None]
  - PULMONARY HYPERTENSIVE CRISIS [None]
